FAERS Safety Report 11307387 (Version 2)
Quarter: 2015Q4

REPORT INFORMATION
  Report Type: Spontaneous
  Country: US (occurrence: US)
  Receive Date: 20150723
  Receipt Date: 20151005
  Transmission Date: 20160304
  Serious: No
  Sender: FDA-Public Use
  Company Number: US-GLAXOSMITHKLINE-US2015104584

PATIENT
  Sex: Male

DRUGS (8)
  1. XOPENEX [Concomitant]
     Active Substance: LEVALBUTEROL HYDROCHLORIDE
  2. FLOVENT [Suspect]
     Active Substance: FLUTICASONE PROPIONATE
     Dosage: 1 PUFF(S), QD
     Route: 055
  3. NASACORT [Concomitant]
     Active Substance: TRIAMCINOLONE ACETONIDE
  4. TYLENOL [Concomitant]
     Active Substance: ACETAMINOPHEN
  5. FLOVENT [Suspect]
     Active Substance: FLUTICASONE PROPIONATE
     Indication: ASTHMA
     Dosage: 2 PUFF(S), BID
     Route: 055
     Dates: start: 200912
  6. SINGULAIR [Concomitant]
     Active Substance: MONTELUKAST SODIUM
  7. PREVACID [Concomitant]
     Active Substance: LANSOPRAZOLE
  8. FLOVENT [Suspect]
     Active Substance: FLUTICASONE PROPIONATE
     Dosage: 2 PUFF(S), TID
     Route: 055

REACTIONS (9)
  - Overdose [Recovered/Resolved]
  - Therapeutic response unexpected [Not Recovered/Not Resolved]
  - Nasopharyngitis [Recovered/Resolved]
  - Drug administered to patient of inappropriate age [Recovered/Resolved]
  - Product quality issue [Unknown]
  - Abnormal behaviour [Unknown]
  - Dyspnoea [Recovered/Resolved]
  - Gastrooesophageal reflux disease [Unknown]
  - Underdose [Not Recovered/Not Resolved]
